FAERS Safety Report 6728805-2 (Version None)
Quarter: 2010Q2

REPORT INFORMATION
  Report Type: 
  Country: None (occurrence: None)
  Receive Date: 20100517
  Receipt Date: 20100218
  Transmission Date: 20101027
  Serious: No
  Sender: FDA-Public Use
  Company Number: US-ABBOTT-10P-163-0627399-00

PATIENT
  Sex: Female

DRUGS (2)
  1. SIMCOR [Suspect]
     Indication: DRUG USE FOR UNKNOWN INDICATION
  2. ASPIRIN [Concomitant]
     Indication: DRUG USE FOR UNKNOWN INDICATION

REACTIONS (5)
  - ARTHRALGIA [None]
  - ARTHRITIS [None]
  - DYSKINESIA [None]
  - MYALGIA [None]
  - PAIN IN EXTREMITY [None]
